FAERS Safety Report 20146573 (Version 1)
Quarter: 2021Q4

REPORT INFORMATION
  Report Type: Spontaneous
  Country: JP (occurrence: JP)
  Receive Date: 20211203
  Receipt Date: 20211203
  Transmission Date: 20220304
  Serious: Yes (Death, Other)
  Sender: FDA-Public Use
  Company Number: JP-GILEAD-2021-0559124

PATIENT
  Age: 69 Year
  Sex: Female

DRUGS (2)
  1. VEKLURY [Suspect]
     Active Substance: REMDESIVIR
     Indication: COVID-19
     Dosage: UNK
     Route: 065
  2. FAVIPIRAVIR [Concomitant]
     Active Substance: FAVIPIRAVIR
     Indication: COVID-19

REACTIONS (5)
  - Death [Fatal]
  - Cerebral haemorrhage [Fatal]
  - Pulmonary fibrosis [Fatal]
  - Lung disorder [Fatal]
  - COVID-19 [Unknown]
